FAERS Safety Report 6280186-7 (Version None)
Quarter: 2009Q3

REPORT INFORMATION
  Report Type: 
  Country: None (occurrence: None)
  Receive Date: 20090723
  Receipt Date: 20090716
  Transmission Date: 20100115
  Serious: Yes (Other)
  Sender: FDA-Public Use
  Company Number: US-GENENTECH-287173

PATIENT
  Sex: Female

DRUGS (5)
  1. RITUXAN [Suspect]
     Indication: B-CELL LYMPHOMA
     Dosage: 375 MG/M2, UNK
     Route: 042
  2. FLUDARA [Concomitant]
     Indication: B-CELL LYMPHOMA
  3. CYTOXAN [Concomitant]
     Indication: B-CELL LYMPHOMA
  4. TREANDA [Concomitant]
     Indication: DRUG USE FOR UNKNOWN INDICATION
  5. CAMPATH [Concomitant]
     Indication: B-CELL LYMPHOMA

REACTIONS (2)
  - HYPOGAMMAGLOBULINAEMIA [None]
  - PANCREATITIS [None]
